FAERS Safety Report 6191069-5 (Version None)
Quarter: 2009Q2

REPORT INFORMATION
  Report Type: 
  Country: None (occurrence: None)
  Receive Date: 20090515
  Receipt Date: 20090505
  Transmission Date: 20091009
  Serious: Yes (Death)
  Sender: FDA-Public Use
  Company Number: TW-BAXTER-2009BH008128

PATIENT
  Sex: Female

DRUGS (4)
  1. DIANEAL [Suspect]
     Indication: RENAL FAILURE CHRONIC
     Route: 033
  2. EXTRANEAL [Suspect]
     Indication: RENAL FAILURE CHRONIC
     Route: 033
  3. NUTRINEAL [Suspect]
     Indication: RENAL FAILURE CHRONIC
     Route: 033
  4. NUTRINEAL [Suspect]
     Route: 033

REACTIONS (1)
  - DEATH [None]
